FAERS Safety Report 9400883 (Version 1)
Quarter: 2013Q3

REPORT INFORMATION
  Report Type: Spontaneous
  Country: US (occurrence: None)
  Receive Date: 20130712
  Receipt Date: 20130712
  Transmission Date: 20140515
  Serious: Yes (Hospitalization, Other)
  Sender: FDA-Public Use
  Company Number: None

PATIENT
  Age: 76 None
  Sex: Female
  Weight: 71.22 kg

DRUGS (1)
  1. STIVARGA [Suspect]
     Indication: COLON CANCER
     Route: 048
     Dates: start: 20130425

REACTIONS (5)
  - Rash [None]
  - Skin exfoliation [None]
  - Immune system disorder [None]
  - Abasia [None]
  - Pain in extremity [None]
